FAERS Safety Report 7353983-4 (Version None)
Quarter: 2011Q1

REPORT INFORMATION
  Report Type: 
  Country: None (occurrence: None)
  Receive Date: 20110315
  Receipt Date: 20110302
  Transmission Date: 20110831
  Serious: Yes (Other)
  Sender: FDA-Public Use
  Company Number: PHHY2010CA73135

PATIENT
  Sex: Male

DRUGS (3)
  1. FOLIC ACID [Concomitant]
  2. PENICILLIN [Concomitant]
  3. EXJADE [Suspect]
     Indication: THALASSAEMIA
     Dosage: 500 MG, QD
     Route: 048

REACTIONS (10)
  - DECREASED APPETITE [None]
  - SKIN DISCOLOURATION [None]
  - CARDIOMEGALY [None]
  - WEIGHT DECREASED [None]
  - GAIT DISTURBANCE [None]
  - LIVER DISORDER [None]
  - MYALGIA [None]
  - TOOTH DISORDER [None]
  - PAIN IN EXTREMITY [None]
  - ASTHENIA [None]
